FAERS Safety Report 12979587 (Version 1)
Quarter: 2016Q4

REPORT INFORMATION
  Report Type: Spontaneous
  Country: CN (occurrence: CN)
  Receive Date: 20161128
  Receipt Date: 20161128
  Transmission Date: 20170207
  Serious: Yes (Life-Threatening, Other)
  Sender: FDA-Public Use
  Company Number: CN-ASTELLAS-2016US046048

PATIENT
  Age: 26 Year
  Sex: Female
  Weight: 38 kg

DRUGS (2)
  1. PROGRAF [Suspect]
     Active Substance: TACROLIMUS\TACROLIMUS ANHYDROUS
     Indication: LUNG TRANSPLANT
     Route: 048
     Dates: start: 20130831
  2. PROGRAF [Suspect]
     Active Substance: TACROLIMUS\TACROLIMUS ANHYDROUS
     Dosage: UNK UNK, UNKNOWN FREQ.
     Route: 048

REACTIONS (3)
  - Metabolic encephalopathy [Unknown]
  - Off label use [Not Recovered/Not Resolved]
  - Drug level fluctuating [Not Recovered/Not Resolved]

NARRATIVE: CASE EVENT DATE: 20130831
